FAERS Safety Report 23458188 (Version 1)
Quarter: 2024Q1

REPORT INFORMATION
  Report Type: Spontaneous
  Country: RU (occurrence: RU)
  Receive Date: 20240130
  Receipt Date: 20240130
  Transmission Date: 20240410
  Serious: Yes (Other)
  Sender: FDA-Public Use
  Company Number: RU-Merck Healthcare KGaA-2024004433

PATIENT
  Age: 69 Year
  Sex: Male

DRUGS (1)
  1. BAVENCIO [Suspect]
     Active Substance: AVELUMAB
     Indication: Metastatic carcinoma of the bladder
     Route: 042
     Dates: start: 20220916

REACTIONS (2)
  - Nephropathy toxic [Unknown]
  - Respiratory tract infection viral [Unknown]
